FAERS Safety Report 22375010 (Version 3)
Quarter: 2023Q2

REPORT INFORMATION
  Report Type: Spontaneous
  Country: DE (occurrence: DE)
  Receive Date: 20230527
  Receipt Date: 20230617
  Transmission Date: 20230722
  Serious: Yes (Other)
  Sender: FDA-Public Use
  Company Number: DE-BFARM-23003899

PATIENT
  Age: 79 Year
  Sex: Male
  Weight: 81 kg

DRUGS (12)
  1. ATORVASTATIN [Suspect]
     Active Substance: ATORVASTATIN
     Indication: Product used for unknown indication
     Dosage: 40 MILLIGRAM, ONCE A DAY (0-0-1)
     Route: 065
     Dates: start: 2020, end: 20200427
  2. ROSUVASTATIN [Suspect]
     Active Substance: ROSUVASTATIN
     Indication: Product used for unknown indication
     Dosage: 5 MILLIGRAM, ONCE A DAY (0-0-1)
     Route: 065
     Dates: start: 20200428
  3. ROSUVASTATIN [Suspect]
     Active Substance: ROSUVASTATIN
     Indication: Product used for unknown indication
     Dosage: 10 MILLIGRAM, ONCE A DAY (0-0-1)
     Route: 065
     Dates: start: 20200529
  4. SIMVASTATIN [Suspect]
     Active Substance: SIMVASTATIN
     Indication: Hypercholesterolaemia
     Dosage: 20 MILLIGRAM, ONCE A DAY (0-0-1)
     Route: 048
     Dates: start: 20221106
  5. SIMVASTATIN [Suspect]
     Active Substance: SIMVASTATIN
     Indication: Carotid arteriosclerosis
  6. SIMVASTATIN [Suspect]
     Active Substance: SIMVASTATIN
     Indication: Coronary artery disease
  7. ROSUVASTATIN CALCIUM [Suspect]
     Active Substance: ROSUVASTATIN CALCIUM
     Indication: Product used for unknown indication
     Dosage: 5 MILLIGRAM, ONCE A DAY (0-0-1)
     Route: 065
  8. TICAGRELOR [Concomitant]
     Active Substance: TICAGRELOR
     Indication: Product used for unknown indication
     Dosage: 90 MILLIGRAM, TWO TIMES A DAY (1-0-1)
     Route: 065
     Dates: start: 20201208, end: 202102
  9. BISOPROLOL [Concomitant]
     Active Substance: BISOPROLOL
     Indication: Atrial fibrillation
     Dosage: 2.5 MILLIGRAM, TWO TIMES A DAY (1-0-1)
     Route: 048
     Dates: start: 2020
  10. CANDESARTAN [Concomitant]
     Active Substance: CANDESARTAN
     Indication: Product used for unknown indication
     Dosage: 2 MILLIGRAM, TWO TIMES A DAY (2MG 1-0-1)
     Route: 048
     Dates: start: 20201213
  11. TAMSULOSIN [Concomitant]
     Active Substance: TAMSULOSIN
     Indication: Benign prostatic hyperplasia
     Dosage: 0.4 MILLIGRAM, ONCE A DAY (0-0-1)
     Route: 048
     Dates: start: 2022
  12. ASPIRIN [Concomitant]
     Active Substance: ASPIRIN
     Indication: Coronary artery disease
     Dosage: 100 MILLIGRAM, ONCE A DAY (1-0-0)
     Route: 048
     Dates: start: 20201208

REACTIONS (8)
  - Chronic myeloid leukaemia [Unknown]
  - Arthralgia [Unknown]
  - Hypersensitivity [Unknown]
  - Haematocrit increased [Unknown]
  - Leukocytosis [Unknown]
  - Performance status decreased [Recovering/Resolving]
  - Pruritus [Unknown]
  - Skin mass [Unknown]

NARRATIVE: CASE EVENT DATE: 20200401
